FAERS Safety Report 5893388-6 (Version None)
Quarter: 2008Q3

REPORT INFORMATION
  Report Type: 
  Country: None (occurrence: None)
  Receive Date: 20080923
  Receipt Date: 20080918
  Transmission Date: 20090109
  Serious: Yes (Hospitalization)
  Sender: FDA-Public Use
  Company Number: US-MERCK-0809USA01390

PATIENT
  Sex: Female

DRUGS (1)
  1. INVANZ [Suspect]
     Indication: BACTERIAL INFECTION
     Route: 051

REACTIONS (2)
  - ADVERSE EVENT [None]
  - RASH [None]
